FAERS Safety Report 8306136-7 (Version None)
Quarter: 2012Q2

REPORT INFORMATION
  Report Type: 
  Country: None (occurrence: None)
  Receive Date: 20120423
  Receipt Date: 20120417
  Transmission Date: 20120825
  Serious: Yes (Death, Other)
  Sender: FDA-Public Use
  Company Number: GB-CELGENEUS-167-50794-09112102

PATIENT

DRUGS (2)
  1. VIDAZA [Suspect]
     Indication: MYELODYSPLASTIC SYNDROME
  2. VIDAZA [Suspect]
     Route: 050
     Dates: start: 20071008

REACTIONS (2)
  - NEUTROPENIA [None]
  - LEUKAEMIA RECURRENT [None]
